FAERS Safety Report 8632764 (Version 2)
Quarter: 2013Q1

REPORT INFORMATION
  Report Type: Spontaneous
  Country: US (occurrence: US)
  Receive Date: 20120625
  Receipt Date: 20130124
  Transmission Date: 20140127
  Serious: Yes (Hospitalization)
  Sender: FDA-Public Use
  Company Number: US-BAYER-2012-062114

PATIENT
  Age: 29 Year
  Sex: Female
  Weight: 45.35 kg

DRUGS (4)
  1. YAZ [Suspect]
     Indication: CONTRACEPTION
     Dosage: UNK
     Dates: start: 20071206, end: 20090813
  2. TYLENOL [Concomitant]
  3. AMBIEN [Concomitant]
  4. REGLAN [Concomitant]

REACTIONS (10)
  - Deep vein thrombosis [None]
  - Injury [None]
  - Pain [None]
  - Emotional distress [None]
  - General physical health deterioration [None]
  - Anxiety [None]
  - Pain [None]
  - Pain in extremity [None]
  - Muscle swelling [None]
  - Fear [None]
